FAERS Safety Report 6022439-3 (Version None)
Quarter: 2008Q4

REPORT INFORMATION
  Report Type: 
  Country: None (occurrence: None)
  Receive Date: 20081230
  Receipt Date: 20081230
  Transmission Date: 20090506
  Serious: Yes (Other)
  Sender: FDA-Public Use
  Company Number: US-ABBOTT-08P-163-0493651-00

PATIENT
  Sex: Female
  Weight: 86.26 kg

DRUGS (15)
  1. HUMIRA [Suspect]
     Indication: RHEUMATOID ARTHRITIS
     Dates: start: 20070701
  2. LEVAQUIN [Concomitant]
     Indication: DERMAL CYST
  3. CEFALEXIN [Concomitant]
     Indication: INFECTION
  4. PREVACID [Concomitant]
     Indication: GASTRIC DISORDER
     Dosage: PRN
  5. BUTALBITAL [Concomitant]
     Indication: MIGRAINE
  6. HYDROCODONE [Concomitant]
     Indication: PAIN
     Dosage: 10/500 MG    10/500 MG
  7. LYRICA [Concomitant]
     Indication: NERVE INJURY
  8. IBUPROFEN [Concomitant]
     Indication: DRUG USE FOR UNKNOWN INDICATION
  9. EFFEXOR XR [Concomitant]
     Indication: DRUG USE FOR UNKNOWN INDICATION
  10. SOMA [Concomitant]
     Indication: DRUG USE FOR UNKNOWN INDICATION
  11. ALLEGRA [Concomitant]
     Indication: DRUG USE FOR UNKNOWN INDICATION
     Dosage: PRN
  12. NEXIUM [Concomitant]
     Indication: DRUG USE FOR UNKNOWN INDICATION
  13. REQUIPT [Concomitant]
     Indication: DRUG USE FOR UNKNOWN INDICATION
  14. XANAX [Concomitant]
     Indication: DRUG USE FOR UNKNOWN INDICATION
  15. AMBIEN [Concomitant]
     Indication: DRUG USE FOR UNKNOWN INDICATION

REACTIONS (7)
  - ARTHRITIS [None]
  - BACK INJURY [None]
  - BRONCHITIS [None]
  - INFECTED SEBACEOUS CYST [None]
  - JOINT INJURY [None]
  - RHEUMATOID FACTOR INCREASED [None]
  - ROAD TRAFFIC ACCIDENT [None]
